FAERS Safety Report 9337966 (Version 2)
Quarter: 2013Q3

REPORT INFORMATION
  Report Type: Report from Study
  Country: BR (occurrence: BR)
  Receive Date: 20130609
  Receipt Date: 20130709
  Transmission Date: 20140515
  Serious: Yes (Other)
  Sender: FDA-Public Use
  Company Number: PHHY2013BR058084

PATIENT
  Age: 90 Year
  Sex: Female
  Weight: 64 kg

DRUGS (6)
  1. EXELON PATCH [Suspect]
     Indication: DELIRIUM
     Dosage: 9.5 MG (PATCH 10 CM2), DAILY
     Route: 062
     Dates: end: 201208
  2. EXELON PATCH [Suspect]
     Dosage: 9.5 MG (PATCH 10 CM2), DAILY
     Route: 062
  3. DONAREN [Suspect]
     Dosage: UNK UKN, UNK
  4. ZYPREXA [Suspect]
     Dosage: UNK UKN, UNK
  5. COMPLEX B                          /00653501/ [Concomitant]
     Indication: DISBACTERIOSIS
     Dosage: 1 DF, QD
     Route: 048
     Dates: start: 201204
  6. CENTRUM [Concomitant]
     Indication: IMMUNODEFICIENCY
     Dosage: 1 DF, QD
     Route: 048
     Dates: start: 201204

REACTIONS (20)
  - Pneumonia [Recovered/Resolved]
  - Cough [Recovered/Resolved]
  - Asthenia [Recovered/Resolved]
  - Sedation [Recovered/Resolved]
  - Drug abuse [Unknown]
  - Dislocation of vertebra [Recovered/Resolved]
  - Spinal fracture [Recovered/Resolved]
  - Osteoporosis [Not Recovered/Not Resolved]
  - Hypersomnia [Recovered/Resolved]
  - Somnolence [Recovered/Resolved]
  - Fall [Unknown]
  - Pain [Not Recovered/Not Resolved]
  - Blood cholesterol increased [Not Recovered/Not Resolved]
  - Suicidal ideation [Recovered/Resolved]
  - Memory impairment [Recovered/Resolved]
  - Dementia [Not Recovered/Not Resolved]
  - Hypertension [Recovered/Resolved]
  - Headache [Recovered/Resolved]
  - Depression [Not Recovered/Not Resolved]
  - Delirium [Not Recovered/Not Resolved]
